FAERS Safety Report 5387279-7 (Version None)
Quarter: 2007Q3

REPORT INFORMATION
  Report Type: 
  Country: None (occurrence: None)
  Receive Date: 20070716
  Receipt Date: 20070705
  Transmission Date: 20080115
  Serious: Yes (Other)
  Sender: FDA-Public Use
  Company Number: PHFR2007GB02064

PATIENT
  Age: 76 Year
  Sex: Female
  Weight: 57 kg

DRUGS (3)
  1. LETROZOLE [Suspect]
     Indication: BREAST CANCER
     Dosage: 1 DF, QD
     Route: 048
     Dates: start: 20070308, end: 20070410
  2. ELTROXIN [Concomitant]
     Dosage: 1 DF, QD
     Route: 065
     Dates: start: 20060704
  3. ISPAGHULA HUSK [Concomitant]
     Dosage: BID
     Route: 065
     Dates: start: 20040812

REACTIONS (2)
  - ABDOMINAL SYMPTOM [None]
  - PAIN [None]
